FAERS Safety Report 4475247-9 (Version None)
Quarter: 2004Q4

REPORT INFORMATION
  Report Type: 
  Country: None (occurrence: None)
  Receive Date: 20041015
  Receipt Date: 20041011
  Transmission Date: 20050328
  Serious: Yes (Other)
  Sender: FDA-Public Use
  Company Number: US-JNJFOC-20041003278

PATIENT
  Age: 14 Year
  Sex: Female

DRUGS (2)
  1. RETIN-A MICRO [Suspect]
     Indication: ACNE
     Route: 061
     Dates: start: 20041002, end: 20041008
  2. IBUPROFEN [Suspect]

REACTIONS (2)
  - ANAPHYLACTIC SHOCK [None]
  - MUSCLE SPASMS [None]
